FAERS Safety Report 19172788 (Version 1)
Quarter: 2021Q2

REPORT INFORMATION
  Report Type: Spontaneous
  Country: US (occurrence: US)
  Receive Date: 20210423
  Receipt Date: 20210423
  Transmission Date: 20210717
  Serious: Yes (Other)
  Sender: FDA-Public Use
  Company Number: US-SA-2021SA134771

PATIENT
  Age: 69 Year
  Sex: Male

DRUGS (3)
  1. DUPIXENT [Suspect]
     Active Substance: DUPILUMAB
     Indication: DERMATITIS ATOPIC
     Dosage: UNK
     Route: 058
     Dates: start: 20200624
  2. DUPIXENT [Suspect]
     Active Substance: DUPILUMAB
     Indication: HYPERTHYROIDISM
  3. DUPIXENT [Suspect]
     Active Substance: DUPILUMAB
     Indication: ESSENTIAL HYPERTENSION

REACTIONS (2)
  - Product use in unapproved indication [Unknown]
  - Transient ischaemic attack [Recovered/Resolved]

NARRATIVE: CASE EVENT DATE: 20200624
